FAERS Safety Report 24859780 (Version 1)
Quarter: 2025Q1

REPORT INFORMATION
  Report Type: Spontaneous
  Country: CN (occurrence: CN)
  Receive Date: 20250119
  Receipt Date: 20250119
  Transmission Date: 20250409
  Serious: Yes (Death, Hospitalization, Other)
  Sender: ABBVIE
  Company Number: CN-JNJFOC-20250118539

PATIENT

DRUGS (1)
  1. IBRUTINIB [Suspect]
     Active Substance: IBRUTINIB
     Indication: Chronic lymphocytic leukaemia
     Route: 048

REACTIONS (88)
  - Death [Fatal]
  - Peripheral swelling [Unknown]
  - Waldenstrom^s macroglobulinaemia [Unknown]
  - Arthralgia [Unknown]
  - Poisoning [Unknown]
  - Blood viscosity decreased [Unknown]
  - Neoplasm malignant [Unknown]
  - Mantle cell lymphoma refractory [Unknown]
  - Pneumonia [Unknown]
  - Blood immunoglobulin M decreased [Unknown]
  - Connective tissue disorder [Unknown]
  - Blood immunoglobulin M abnormal [Unknown]
  - Lymphocytosis [Unknown]
  - Dizziness [Unknown]
  - Nausea [Unknown]
  - Fall [Unknown]
  - Administration site discomfort [Unknown]
  - Adverse event [Unknown]
  - Pain [Unknown]
  - Haemorrhage [Unknown]
  - Pseudohyperkalaemia [Unknown]
  - Blood blister [Unknown]
  - Skin operation [Unknown]
  - Mental disorder [Unknown]
  - Reproductive tract disorder [Unknown]
  - Cardiac disorder [Unknown]
  - Oral blood blister [Unknown]
  - Prostatic operation [Unknown]
  - Metabolic disorder [Unknown]
  - Musculoskeletal disorder [Unknown]
  - Inner ear disorder [Unknown]
  - Muscle spasms [Unknown]
  - Fatigue [Unknown]
  - Benign neoplasm [Unknown]
  - Hepatobiliary disease [Unknown]
  - Facial operation [Unknown]
  - Adverse event [Unknown]
  - Infestation [Unknown]
  - Angiopathy [Unknown]
  - Medical procedure [Unknown]
  - Blood immunoglobulin M increased [Unknown]
  - Increased tendency to bruise [Unknown]
  - Investigation [Unknown]
  - Thrombocytopenia [Unknown]
  - Endocrine disorder [Unknown]
  - Lymphocyte count increased [Unknown]
  - Platelet count decreased [Unknown]
  - Musculoskeletal pain [Unknown]
  - Chronic lymphocytic leukaemia [Unknown]
  - Off label use [Unknown]
  - White blood cell count abnormal [Unknown]
  - Chronic lymphocytic leukaemia transformation [Unknown]
  - Ear disorder [Unknown]
  - Underdose [Unknown]
  - Infection [Unknown]
  - Malnutrition [Unknown]
  - Neutropenia [Unknown]
  - Micrographic skin surgery [Unknown]
  - Rash [Unknown]
  - B-cell prolymphocytic leukaemia [Unknown]
  - Gastrointestinal disorder [Unknown]
  - Onychoclasis [Unknown]
  - Eye disorder [Unknown]
  - Injury [Unknown]
  - Prostatic urethral lift procedure [Unknown]
  - Renal disorder [Unknown]
  - Procedural complication [Unknown]
  - Breast disorder [Unknown]
  - Mediastinal disorder [Unknown]
  - Anaemia [Unknown]
  - Immune system disorder [Unknown]
  - Bing-Neel syndrome [Unknown]
  - Blood disorder [Unknown]
  - Post procedural contusion [Unknown]
  - Asthenia [Unknown]
  - Contusion [Unknown]
  - Mantle cell lymphoma [Unknown]
  - Hospitalisation [Unknown]
  - Diarrhoea [Unknown]
  - Nervous system disorder [Unknown]
  - Haematotympanum [Unknown]
  - Richter^s syndrome [Unknown]
  - Skin disorder [Unknown]
  - Respiratory disorder [Unknown]
  - Exposure during pregnancy [Unknown]
  - Angina bullosa haemorrhagica [Unknown]
  - Atrial fibrillation [Unknown]
  - Mantle cell lymphoma recurrent [Unknown]
